FAERS Safety Report 7664180-7 (Version None)
Quarter: 2011Q3

REPORT INFORMATION
  Report Type: 
  Country: None (occurrence: None)
  Receive Date: 20110806
  Receipt Date: 20110112
  Transmission Date: 20111222
  Serious: No
  Sender: FDA-Public Use
  Company Number: US-ABBOTT-11P-163-0697110-00

PATIENT
  Age: 72 Year
  Sex: Female

DRUGS (5)
  1. GEMFIBROZIL [Concomitant]
     Indication: BLOOD CHOLESTEROL INCREASED
  2. LOVASTATIN [Concomitant]
     Indication: BLOOD CHOLESTEROL INCREASED
  3. PROPRANOLOL [Concomitant]
     Indication: HEART RATE INCREASED
     Dates: start: 19830101
  4. ASPIRIN [Concomitant]
     Indication: PRODUCT USED FOR UNKNOWN INDICATION
  5. NIASPAN [Suspect]
     Indication: BLOOD CHOLESTEROL INCREASED
     Dosage: EVERY NIGHT
     Dates: start: 20080101

REACTIONS (3)
  - NIGHT SWEATS [None]
  - DECREASED INTEREST [None]
  - DIZZINESS [None]
